FAERS Safety Report 17139213 (Version 1)
Quarter: 2019Q4

REPORT INFORMATION
  Report Type: Spontaneous
  Country: US (occurrence: US)
  Receive Date: 20191210
  Receipt Date: 20191210
  Transmission Date: 20200122
  Serious: Yes (Death)
  Sender: FDA-Public Use
  Company Number: None

PATIENT
  Age: 61 Year
  Sex: Male

DRUGS (1)
  1. AXICABTAGENE CILOLEUCEL [Suspect]
     Active Substance: AXICABTAGENE CILOLEUCEL

REACTIONS (4)
  - Ammonia increased [None]
  - Disturbance in attention [None]
  - Haemophagocytic lymphohistiocytosis [None]
  - Encephalopathy [None]

NARRATIVE: CASE EVENT DATE: 20190624
